FAERS Safety Report 7815251 (Version 2)
Quarter: 2012Q4

REPORT INFORMATION
  Report Type: Report from Study
  Country: ES (occurrence: ES)
  Receive Date: 20110216
  Receipt Date: 20121002
  Transmission Date: 20130627
  Serious: Yes (Other)
  Sender: FDA-Public Use
  Company Number: ES-ELI_LILLY_AND_COMPANY-ES201102002307

PATIENT
  Age: 67 Year
  Sex: Male
  Weight: 70 kg

DRUGS (3)
  1. NECITUMUMAB [Suspect]
     Indication: NON-SMALL CELL LUNG CANCER
     Dosage: 800 mg, UNK
     Dates: start: 20101022, end: 20110125
  2. PEMETREXED [Suspect]
     Indication: NON-SMALL CELL LUNG CANCER
     Dosage: 901 mg, UNK
     Dates: start: 20101022, end: 20110118
  3. CISPLATIN [Suspect]
     Indication: NON-SMALL CELL LUNG CANCER
     Dosage: 135 mg, UNK
     Dates: start: 20101022, end: 20110118

REACTIONS (1)
  - Arterial disorder [Not Recovered/Not Resolved]
